FAERS Safety Report 23361745 (Version 1)
Quarter: 2024Q1

REPORT INFORMATION
  Report Type: Spontaneous
  Country: JP (occurrence: JP)
  Receive Date: 20240103
  Receipt Date: 20240103
  Transmission Date: 20240410
  Serious: Yes (Disabling, Other)
  Sender: FDA-Public Use
  Company Number: JP-CHUGAI-2023046594AA

PATIENT
  Age: 75 Year
  Sex: Male
  Weight: 63 kg

DRUGS (19)
  1. TECENTRIQ [Suspect]
     Active Substance: ATEZOLIZUMAB
     Indication: Small cell lung cancer
     Dosage: 1200 MILLIGRAM, QD
     Route: 042
     Dates: start: 20230524, end: 20230524
  2. TECENTRIQ [Suspect]
     Active Substance: ATEZOLIZUMAB
     Dosage: 1200 MILLIGRAM, ONCE/4WEEKS
     Route: 042
     Dates: start: 20230619, end: 20230718
  3. CARBOPLATIN [Suspect]
     Active Substance: CARBOPLATIN
     Indication: Small cell lung cancer
     Dosage: 457 MILLIGRAM, QD
     Route: 065
     Dates: start: 20230524, end: 20230524
  4. CARBOPLATIN [Suspect]
     Active Substance: CARBOPLATIN
     Dosage: 430 MILLIGRAM, ONCE/4WEEKS
     Route: 065
     Dates: start: 20230619, end: 20230718
  5. ETOPOSIDE [Suspect]
     Active Substance: ETOPOSIDE
     Indication: Small cell lung cancer
     Dosage: 138 MILLIGRAM, QD
     Route: 065
     Dates: start: 20230524, end: 20230526
  6. ETOPOSIDE [Suspect]
     Active Substance: ETOPOSIDE
     Dosage: 140 MILLIGRAM, QD
     Route: 065
     Dates: start: 20230619, end: 20230621
  7. ETOPOSIDE [Suspect]
     Active Substance: ETOPOSIDE
     Dosage: 140 MILLIGRAM, QD
     Route: 065
     Dates: start: 20230718, end: 20230720
  8. DEXAMETHASONE SODIUM PHOSPHATE [Concomitant]
     Active Substance: DEXAMETHASONE PHOSPHATE\DEXAMETHASONE SODIUM PHOSPHATE
     Dosage: UNK UNK, QD
     Dates: start: 20230524, end: 20230524
  9. DEXAMETHASONE SODIUM PHOSPHATE [Concomitant]
     Active Substance: DEXAMETHASONE PHOSPHATE\DEXAMETHASONE SODIUM PHOSPHATE
     Dosage: UNK, ONCE/4WEEKS
     Dates: start: 20230619, end: 20230718
  10. PALONOSETRON HYDROCHLORIDE [Concomitant]
     Active Substance: PALONOSETRON HYDROCHLORIDE
     Dosage: UNK, QD
     Dates: start: 20230524, end: 20230524
  11. PALONOSETRON HYDROCHLORIDE [Concomitant]
     Active Substance: PALONOSETRON HYDROCHLORIDE
     Dosage: UNK, ONCE/4WEEKS
     Dates: start: 20230619, end: 20230717
  12. FOSNETUPITANT CHLORIDE HYDROCHLORIDE [Concomitant]
     Active Substance: FOSNETUPITANT CHLORIDE HYDROCHLORIDE
     Dosage: UNK, QD
     Dates: start: 20230524, end: 20230524
  13. FOSNETUPITANT CHLORIDE HYDROCHLORIDE [Concomitant]
     Active Substance: FOSNETUPITANT CHLORIDE HYDROCHLORIDE
     Dosage: UNK, ONCE/4WEEKS
     Dates: start: 20230619, end: 20230718
  14. ASPIRIN\VONOPRAZAN FUMARATE [Concomitant]
     Active Substance: ASPIRIN\VONOPRAZAN FUMARATE
     Dosage: UNK, QD
  15. MICARDIS [Concomitant]
     Active Substance: TELMISARTAN
     Dosage: 20 MILLIGRAM, QD
  16. PRAVASTATIN SODIUM [Concomitant]
     Active Substance: PRAVASTATIN SODIUM
     Dosage: 10 MILLIGRAM, QD
  17. URSO [Concomitant]
     Active Substance: URSODIOL
     Dosage: 100 MILLIGRAM, BID
  18. SILODOSIN [Concomitant]
     Active Substance: SILODOSIN
     Dosage: 4 MILLIGRAM, BID
  19. MINIRIN [Concomitant]
     Active Substance: DESMOPRESSIN ACETATE
     Dosage: 25 MICROGRAM, QD

REACTIONS (2)
  - Macular oedema [Not Recovered/Not Resolved]
  - Neutrophil count decreased [Unknown]

NARRATIVE: CASE EVENT DATE: 20230713
